FAERS Safety Report 15934525 (Version 1)
Quarter: 2019Q1

REPORT INFORMATION
  Report Type: Spontaneous
  Country: PL (occurrence: PL)
  Receive Date: 20190207
  Receipt Date: 20190207
  Transmission Date: 20190417
  Serious: Yes (Other)
  Sender: FDA-Public Use
  Company Number: PL-MYLANLABS-2019M1011846

PATIENT
  Age: 5 Year
  Sex: Male
  Weight: 25 kg

DRUGS (1)
  1. KLACID 250 MG COATED TABLETS [Suspect]
     Active Substance: CLARITHROMYCIN
     Indication: TONSILLITIS
     Dosage: 2 DOSAGE FORM, QD
     Route: 048
     Dates: start: 20190128, end: 20190128

REACTIONS (6)
  - Off label use [None]
  - Vomiting [Recovered/Resolved]
  - Product use issue [Recovered/Resolved]
  - Product administered to patient of inappropriate age [None]
  - Depressed level of consciousness [Recovered/Resolved]
  - Gait disturbance [Recovered/Resolved]

NARRATIVE: CASE EVENT DATE: 20180128
